FAERS Safety Report 9662433 (Version 2)
Quarter: 2013Q4

REPORT INFORMATION
  Report Type: Spontaneous
  Country: US (occurrence: US)
  Receive Date: 20131031
  Receipt Date: 20131031
  Transmission Date: 20140711
  Serious: No
  Sender: FDA-Public Use
  Company Number: US-PURDUE-USA-2010-0049250

PATIENT
  Sex: Male

DRUGS (2)
  1. OXYCONTIN (NDA 22-272) [Suspect]
     Indication: SCIATIC NERVE INJURY
     Dosage: 20 MG, BID
     Route: 048
     Dates: start: 20101004
  2. LORTAB                             /00607101/ [Concomitant]
     Indication: BREAKTHROUGH PAIN

REACTIONS (2)
  - Breakthrough pain [Not Recovered/Not Resolved]
  - Drug ineffective [Not Recovered/Not Resolved]
